FAERS Safety Report 9031937 (Version 2)
Quarter: 2013Q1

REPORT INFORMATION
  Report Type: Spontaneous
  Country: US (occurrence: US)
  Receive Date: 20130125
  Receipt Date: 20130214
  Transmission Date: 20140127
  Serious: Yes (Other)
  Sender: FDA-Public Use
  Company Number: US-PFIZER INC-2013032623

PATIENT
  Age: 52 Year
  Sex: Male
  Weight: 77.1 kg

DRUGS (4)
  1. LYRICA [Suspect]
     Indication: FIBROMYALGIA
     Dosage: 200 MG, 3X/DAY
     Route: 048
  2. LYRICA [Suspect]
     Indication: CONVULSION
  3. VIMPAT [Concomitant]
     Dosage: UNK
  4. DEPAKOTE [Concomitant]
     Dosage: UNK

REACTIONS (3)
  - Loss of consciousness [Not Recovered/Not Resolved]
  - Epilepsy [Not Recovered/Not Resolved]
  - Tremor [Not Recovered/Not Resolved]
